FAERS Safety Report 10175980 (Version 1)
Quarter: 2014Q2

REPORT INFORMATION
  Report Type: Spontaneous
  Country: US (occurrence: None)
  Receive Date: 20140425
  Receipt Date: 20140425
  Transmission Date: 20141212
  Serious: No
  Sender: FDA-Public Use
  Company Number: AP356-00496-SPO-US

PATIENT
  Age: 59 Year
  Sex: Female
  Weight: 84.09 kg

DRUGS (3)
  1. BELVIQ [Suspect]
     Indication: WEIGHT DECREASED
     Dosage: 20 MG, 2 IN 1 D, ORAL
     Route: 048
     Dates: start: 20140228, end: 20140228
  2. AMLODIPINE (AMLODIPINE) [Concomitant]
  3. SYNTHROID (LEVOTHYROXINE SODIUM) [Concomitant]

REACTIONS (2)
  - Headache [None]
  - Feeling abnormal [None]
